FAERS Safety Report 9241661 (Version 1)
Quarter: 2013Q2

REPORT INFORMATION
  Report Type: Spontaneous
  Country: US (occurrence: US)
  Receive Date: 20130418
  Receipt Date: 20130418
  Transmission Date: 20140414
  Serious: No
  Sender: FDA-Public Use
  Company Number: US-PFIZER INC-2013117383

PATIENT
  Sex: 0

DRUGS (1)
  1. ADVIL [Suspect]
     Dosage: UNK

REACTIONS (3)
  - Drug administration error [Unknown]
  - Feeling abnormal [Unknown]
  - Product label issue [Unknown]
